FAERS Safety Report 9698294 (Version 1)
Quarter: 2013Q4

REPORT INFORMATION
  Report Type: Spontaneous
  Country: US (occurrence: FR)
  Receive Date: 20131120
  Receipt Date: 20131120
  Transmission Date: 20140711
  Serious: Yes (Other)
  Sender: FDA-Public Use
  Company Number: US-PFIZER INC-2013326156

PATIENT
  Sex: 0

DRUGS (1)
  1. PREGABALIN [Suspect]

REACTIONS (6)
  - Drug withdrawal syndrome [Unknown]
  - Aggression [Unknown]
  - Agitation [Unknown]
  - Logorrhoea [Unknown]
  - Delusion [Unknown]
  - Refusal of treatment by patient [Unknown]
